FAERS Safety Report 5384923-5 (Version None)
Quarter: 2007Q3

REPORT INFORMATION
  Report Type: 
  Country: None (occurrence: None)
  Receive Date: 20070709
  Receipt Date: 20070626
  Transmission Date: 20080115
  Serious: Yes (Other)
  Sender: FDA-Public Use
  Company Number: 1-15047602/MED-07134

PATIENT
  Age: 49 Year
  Sex: Female

DRUGS (6)
  1. BACTRIM [Suspect]
     Dosage: UNK, ORAL
     Route: 048
     Dates: start: 20070215
  2. PEGASYS [Suspect]
     Dates: start: 20060515, end: 20070309
  3. RIBAVIRIN [Suspect]
     Dates: start: 20060515, end: 20070309
  4. LAMICTAL [Suspect]
  5. TRILEPTAL [Suspect]
  6. EFFEXOR [Suspect]

REACTIONS (15)
  - BONE PAIN [None]
  - BURNING SENSATION [None]
  - DRUG HYPERSENSITIVITY [None]
  - ERYTHEMA [None]
  - EXERCISE TOLERANCE DECREASED [None]
  - FATIGUE [None]
  - FOOD ALLERGY [None]
  - HEPATIC ENZYME INCREASED [None]
  - MOBILITY DECREASED [None]
  - NERVOUS SYSTEM DISORDER [None]
  - PAIN OF SKIN [None]
  - PERIPHERAL SENSORY NEUROPATHY [None]
  - PRURITUS [None]
  - SPEECH DISORDER [None]
  - STEVENS-JOHNSON SYNDROME [None]
